FAERS Safety Report 9297840 (Version 1)
Quarter: 2013Q2

REPORT INFORMATION
  Report Type: Spontaneous
  Country: US (occurrence: US)
  Receive Date: 20130520
  Receipt Date: 20130520
  Transmission Date: 20140414
  Serious: Yes (Other)
  Sender: FDA-Public Use
  Company Number: US-PFIZER INC-2013153495

PATIENT
  Age: 52 Year
  Sex: Female
  Weight: 131.52 kg

DRUGS (5)
  1. LYRICA [Suspect]
     Indication: FIBROMYALGIA
     Dosage: 75 MG, 3X/DAY
     Route: 048
     Dates: end: 201305
  2. LYRICA [Suspect]
     Dosage: 75 MG, 4X/DAY
     Route: 048
     Dates: start: 201305
  3. CELEXA [Concomitant]
     Dosage: 20 MG
  4. LISINOPRIL [Concomitant]
     Indication: HYPERTENSION
     Dosage: UNK
  5. ESTRADIOL [Concomitant]
     Dosage: 1 MG

REACTIONS (4)
  - Blood cholesterol increased [Unknown]
  - Burning sensation [Recovered/Resolved]
  - Laziness [Recovered/Resolved]
  - Dizziness [Recovered/Resolved]
